FAERS Safety Report 14298019 (Version 2)
Quarter: 2017Q4

REPORT INFORMATION
  Report Type: Spontaneous
  Country: JP (occurrence: JP)
  Receive Date: 20171218
  Receipt Date: 20171229
  Transmission Date: 20180321
  Serious: Yes (Life-Threatening, Hospitalization)
  Sender: FDA-Public Use
  Company Number: JP-BAXTER-2017BAX042670

PATIENT
  Age: 66 Year
  Sex: Male

DRUGS (16)
  1. DOCETAXEL HYDRATE [Suspect]
     Active Substance: DOCETAXEL
     Indication: DISEASE PROGRESSION
  2. DOCETAXEL HYDRATE [Suspect]
     Active Substance: DOCETAXEL
     Indication: METASTASES TO LUNG
     Dosage: 1 CYCLE
     Route: 065
     Dates: start: 201609
  3. GEMCITABINE HYDROCHLORIDE. [Suspect]
     Active Substance: GEMCITABINE HYDROCHLORIDE
     Indication: BLADDER CANCER
     Dosage: 1 CYCLE
     Route: 065
     Dates: start: 201609
  4. CARBOPLATIN. [Suspect]
     Active Substance: CARBOPLATIN
     Indication: BLADDER CANCER
  5. TAZOBACTAM SODIUM/PIPERACILLIN SODIUM [Concomitant]
     Active Substance: PIPERACILLIN SODIUM\TAZOBACTAM SODIUM
     Indication: INFECTION
     Route: 065
     Dates: start: 20161025
  6. CARBOPLATIN. [Suspect]
     Active Substance: CARBOPLATIN
     Indication: METASTASES TO LUNG
     Dosage: 1 CYCLE
     Route: 065
     Dates: start: 201609
  7. NEDAPLATIN [Suspect]
     Active Substance: NEDAPLATIN
     Indication: BLADDER CANCER
     Dosage: ON DAY 1
     Route: 065
     Dates: start: 20161018
  8. NEDAPLATIN [Suspect]
     Active Substance: NEDAPLATIN
     Indication: METASTASES TO LUNG
  9. IFEX [Suspect]
     Active Substance: IFOSFAMIDE
     Indication: METASTASES TO LUNG
  10. IFEX [Suspect]
     Active Substance: IFOSFAMIDE
     Indication: DISEASE PROGRESSION
  11. GEMCITABINE HYDROCHLORIDE. [Suspect]
     Active Substance: GEMCITABINE HYDROCHLORIDE
     Indication: METASTASES TO LUNG
     Dosage: 3 CYCLES
     Route: 065
     Dates: start: 201607
  12. DOCETAXEL HYDRATE [Suspect]
     Active Substance: DOCETAXEL
     Indication: BLADDER CANCER
     Dosage: ON DAY 1
     Route: 065
     Dates: start: 20161018
  13. IFEX [Suspect]
     Active Substance: IFOSFAMIDE
     Indication: BLADDER CANCER
     Dosage: ON DAY 1-5
     Route: 041
     Dates: start: 20161018, end: 20161022
  14. CISPLATIN. [Suspect]
     Active Substance: CISPLATIN
     Indication: BLADDER CANCER
  15. NEDAPLATIN [Suspect]
     Active Substance: NEDAPLATIN
     Indication: DISEASE PROGRESSION
  16. CISPLATIN. [Suspect]
     Active Substance: CISPLATIN
     Indication: METASTASES TO LUNG
     Dosage: 3 CYCLES
     Route: 065
     Dates: start: 201607

REACTIONS (3)
  - Febrile neutropenia [Recovered/Resolved]
  - Disseminated intravascular coagulation [Recovered/Resolved]
  - Condition aggravated [Recovered/Resolved]

NARRATIVE: CASE EVENT DATE: 20161025
